FAERS Safety Report 11826470 (Version 4)
Quarter: 2016Q1

REPORT INFORMATION
  Report Type: Spontaneous
  Country: US (occurrence: US)
  Receive Date: 20151211
  Receipt Date: 20160205
  Transmission Date: 20160525
  Serious: Yes (Hospitalization)
  Sender: FDA-Public Use
  Company Number: US-GLAXOSMITHKLINE-US2015GSK174956

PATIENT
  Age: 53 Year
  Sex: Female

DRUGS (1)
  1. ADVAIR HFA [Suspect]
     Active Substance: FLUTICASONE PROPIONATE\SALMETEROL XINAFOATE
     Indication: PRODUCT USED FOR UNKNOWN INDICATION
     Dosage: UNK
     Dates: start: 20100726

REACTIONS (3)
  - Inability to afford medication [Unknown]
  - Chronic obstructive pulmonary disease [Unknown]
  - Exposure via inhalation [Unknown]

NARRATIVE: CASE EVENT DATE: 201512
